FAERS Safety Report 9846074 (Version 1)
Quarter: 2013Q4

REPORT INFORMATION
  Report Type: Spontaneous
  Country: US (occurrence: None)
  Receive Date: 20131223
  Receipt Date: 20131223
  Transmission Date: 20140711
  Serious: Yes (Disabling)
  Sender: FDA-Public Use
  Company Number: SYM-2013-01550

PATIENT
  Age: 58 Year
  Sex: Female

DRUGS (1)
  1. XENAZINE [Suspect]
     Indication: CHOREA
     Dosage: 12.5 MG: 1 IN THE MORNING, 1 IN THE AFTERNOONR, AND 2 AT BEDTIME, ORAL
     Route: 048
     Dates: start: 20121006

REACTIONS (4)
  - Depression [None]
  - Suicidal ideation [None]
  - Somnolence [None]
  - Insomnia [None]
